FAERS Safety Report 9121938 (Version 2)
Quarter: 2013Q1

REPORT INFORMATION
  Report Type: Spontaneous
  Country: BR (occurrence: BR)
  Receive Date: 20130227
  Receipt Date: 20130328
  Transmission Date: 20140127
  Serious: Yes (Other)
  Sender: FDA-Public Use
  Company Number: BR-PFIZER INC-2013068998

PATIENT
  Sex: Female

DRUGS (4)
  1. LYRICA [Suspect]
     Dosage: 75 MG, ONE CAPSULE IN THE MORNING AND ONE CAPSULE AT NIGHT
     Route: 048
     Dates: start: 20130221
  2. ATENOLOL [Concomitant]
     Indication: HYPERTENSION
     Dosage: AT NIGHT
  3. VASOPRIL PLUS [Concomitant]
     Indication: HYPERTENSION
     Dosage: IN THE MORNING
  4. EUTHYROX [Concomitant]
     Indication: HYPOTHYROIDISM
     Dosage: UNK

REACTIONS (10)
  - Drug hypersensitivity [Recovered/Resolved]
  - Dyspnoea [Unknown]
  - Swelling face [Unknown]
  - Dizziness [Unknown]
  - Thirst [Unknown]
  - Insomnia [Unknown]
  - Headache [Unknown]
  - Dry mouth [Unknown]
  - Swelling [Unknown]
  - Fatigue [Unknown]
